FAERS Safety Report 7466047-6 (Version None)
Quarter: 2011Q2

REPORT INFORMATION
  Report Type: 
  Country: None (occurrence: None)
  Receive Date: 20110509
  Receipt Date: 20110428
  Transmission Date: 20111010
  Serious: Yes (Other)
  Sender: FDA-Public Use
  Company Number: MX-SANOFI-AVENTIS-2011SA026580

PATIENT
  Age: 61 Year
  Sex: Female
  Weight: 71 kg

DRUGS (4)
  1. INSULIN [Suspect]
     Indication: TYPE 2 DIABETES MELLITUS
     Route: 058
     Dates: start: 20030101
  2. ADALAT [Concomitant]
     Route: 048
     Dates: start: 20000101, end: 20110401
  3. SERETIDE [Concomitant]
     Dates: start: 20110418
  4. ALBUTEROL SULFATE AUTOHALER [Concomitant]
     Dates: start: 20110418

REACTIONS (2)
  - HYPERTENSIVE EMERGENCY [None]
  - HYPERGLYCAEMIA [None]
